FAERS Safety Report 5535611-3 (Version None)
Quarter: 2007Q4

REPORT INFORMATION
  Report Type: 
  Country: None (occurrence: None)
  Receive Date: 20071120
  Receipt Date: 20070808
  Transmission Date: 20080405
  Serious: No
  Sender: FDA-Public Use
  Company Number: WAES 0708USA01522

PATIENT
  Age: 79 Year
  Sex: Female

DRUGS (5)
  1. JANUVIA [Suspect]
     Indication: TYPE 2 DIABETES MELLITUS
     Dosage: 100 MG/DAILY/PO
     Route: 048
     Dates: start: 20070729, end: 20070805
  2. DIOVAN [Concomitant]
  3. CALCIUM (UNSPECIFIED) [Concomitant]
  4. FUROSEMIDE [Concomitant]
  5. VITAMINS (UNSPECIFIED) [Concomitant]

REACTIONS (3)
  - CONSTIPATION [None]
  - INSOMNIA [None]
  - PAIN IN EXTREMITY [None]
